FAERS Safety Report 15212992 (Version 1)
Quarter: 2018Q3

REPORT INFORMATION
  Report Type: Spontaneous
  Country: FR (occurrence: FR)
  Receive Date: 20180730
  Receipt Date: 20180730
  Transmission Date: 20181010
  Serious: Yes (Hospitalization)
  Sender: FDA-Public Use
  Company Number: FR-TEVA-2018-FR-931694

PATIENT
  Age: 67 Year
  Sex: Female

DRUGS (4)
  1. TACROLIMUS. [Suspect]
     Active Substance: TACROLIMUS
     Indication: LIVER TRANSPLANT
     Dosage: 5 MILLIGRAM DAILY;
     Route: 048
     Dates: start: 201309
  2. ATENOLOL. [Concomitant]
     Active Substance: ATENOLOL
     Indication: EXTRASYSTOLES
     Dosage: 50 MILLIGRAM DAILY; ONCE DAILY IN THE MORNING
     Route: 048
     Dates: start: 2015
  3. CELLCEPT [Concomitant]
     Active Substance: MYCOPHENOLATE MOFETIL\MYCOPHENOLATE MOFETIL HYDROCHLORIDE
     Indication: IMMUNOSUPPRESSION
     Dosage: 500 MG IN THE MORNING AND 1000 MG IN THE EVENING
     Route: 048
     Dates: start: 2014
  4. ASPIRINE [Concomitant]
     Active Substance: ASPIRIN
     Indication: PRODUCT USED FOR UNKNOWN INDICATION
     Dosage: 100 MILLIGRAM DAILY;
     Route: 065

REACTIONS (6)
  - Drug interaction [Unknown]
  - Pyrexia [Unknown]
  - Immunosuppressant drug level decreased [Unknown]
  - Diarrhoea [Unknown]
  - Pulmonary embolism [Not Recovered/Not Resolved]
  - Fatigue [Unknown]

NARRATIVE: CASE EVENT DATE: 201309
